FAERS Safety Report 6554212-1 (Version None)
Quarter: 2010Q1

REPORT INFORMATION
  Report Type: 
  Country: None (occurrence: None)
  Receive Date: 20100127
  Receipt Date: 20100116
  Transmission Date: 20100710
  Serious: Yes (Other)
  Sender: FDA-Public Use
  Company Number: US-JNJCH-2010002341

PATIENT
  Sex: Female

DRUGS (1)
  1. ROLAIDS EXTRA STRENGTH FRUIT [Suspect]
     Indication: DYSPEPSIA
     Dosage: TEXT:UNSPECIFIED
     Route: 048

REACTIONS (3)
  - ABDOMINAL PAIN UPPER [None]
  - DIARRHOEA [None]
  - WEIGHT DECREASED [None]
